FAERS Safety Report 8051547-0 (Version None)
Quarter: 2012Q1

REPORT INFORMATION
  Report Type: 
  Country: None (occurrence: None)
  Receive Date: 20120117
  Receipt Date: 20120110
  Transmission Date: 20120608
  Serious: No
  Sender: FDA-Public Use
  Company Number: US-BAYER-2012-003400

PATIENT

DRUGS (2)
  1. FINACEA [Suspect]
     Dosage: UNK, QOD
     Route: 061
     Dates: start: 20111220, end: 20120102
  2. FINACEA [Suspect]
     Indication: DERMATITIS CONTACT
     Dosage: UNK UNK, QD
     Route: 061
     Dates: start: 20111213, end: 20111220

REACTIONS (4)
  - DRY SKIN [None]
  - ERYTHEMA [None]
  - NON-CARDIAC CHEST PAIN [None]
  - BURNING SENSATION [None]
